FAERS Safety Report 9271615 (Version 1)
Quarter: 2013Q2

REPORT INFORMATION
  Report Type: Spontaneous
  Country: US (occurrence: US)
  Receive Date: 20130506
  Receipt Date: 20130506
  Transmission Date: 20140414
  Serious: No
  Sender: FDA-Public Use
  Company Number: US-ASTRAZENECA-2013SE26395

PATIENT
  Age: 93 Year
  Sex: Male

DRUGS (2)
  1. OMEPRAZOLE [Suspect]
     Route: 048
  2. TWO BLOOD PRESSURE MEDICATION [Suspect]
     Route: 065

REACTIONS (3)
  - Bowel movement irregularity [Unknown]
  - Abdominal discomfort [Unknown]
  - Diarrhoea [Unknown]
